FAERS Safety Report 15384464 (Version 2)
Quarter: 2018Q3

REPORT INFORMATION
  Report Type: Report from Study
  Country: US (occurrence: US)
  Receive Date: 20180914
  Receipt Date: 20180927
  Transmission Date: 20181010
  Serious: Yes (Hospitalization, Other)
  Sender: FDA-Public Use
  Company Number: US-ROCHE-2183756

PATIENT
  Age: 45 Year
  Sex: Female
  Weight: 60.38 kg

DRUGS (9)
  1. OCREVUS [Suspect]
     Active Substance: OCRELIZUMAB
     Indication: RELAPSING-REMITTING MULTIPLE SCLEROSIS
     Dosage: LAST DOSE RECEIVED ON 21/APR/2018
     Route: 065
     Dates: start: 201710, end: 20180421
  2. SOLU?MEDROL [Concomitant]
     Active Substance: METHYLPREDNISOLONE SODIUM SUCCINATE
     Dosage: 5 DAYS
     Route: 065
  3. BACLOFEN. [Concomitant]
     Active Substance: BACLOFEN
     Dosage: MOST RECENT DOSE 15/MAY/2018
     Route: 065
  4. ELIQUIS [Concomitant]
     Active Substance: APIXABAN
     Dosage: MOST RECENT DOSE 15/AUG/2018
     Route: 065
  5. TOPAMAX [Concomitant]
     Active Substance: TOPIRAMATE
     Dosage: MOST RECENT DOSE 30/AUG/2018
     Route: 065
  6. ZONEGRAN [Concomitant]
     Active Substance: ZONISAMIDE
     Dosage: MOST RECENT DOSE 30/AUG/2017
     Route: 065
  7. ZOFRAN [Concomitant]
     Active Substance: ONDANSETRON HYDROCHLORIDE
     Dosage: MOST RECENT DOSE15/MAY/2018
     Route: 048
  8. RESTORIL [Concomitant]
     Active Substance: TEMAZEPAM
     Dosage: MOST RECENT DOSE 23/MAY/2018
     Route: 065
  9. ADDERALL [Concomitant]
     Active Substance: AMPHETAMINE ASPARTATE\AMPHETAMINE SULFATE\DEXTROAMPHETAMINE SACCHARATE\DEXTROAMPHETAMINE SULFATE
     Dosage: MOST RECENT DOSE 19/JUL/2018
     Route: 065

REACTIONS (16)
  - Motor dysfunction [Recovered/Resolved]
  - Weight decreased [Recovered/Resolved]
  - Gait disturbance [Recovered/Resolved]
  - Blindness [Recovered/Resolved]
  - Dyskinesia [Recovered/Resolved]
  - Brain oedema [Recovered/Resolved]
  - Immunosuppression [Recovered/Resolved]
  - Retching [Recovered/Resolved]
  - Nausea [Unknown]
  - Cognitive disorder [Recovered/Resolved]
  - Musculoskeletal stiffness [Recovered/Resolved]
  - Viral infection [Recovered/Resolved]
  - Urinary tract infection [Recovered/Resolved]
  - Meningitis viral [Recovered/Resolved]
  - Sinusitis [Recovered/Resolved]
  - Drug hypersensitivity [Unknown]

NARRATIVE: CASE EVENT DATE: 20180721
